FAERS Safety Report 8853775 (Version 1)
Quarter: 2012Q4

REPORT INFORMATION
  Report Type: 
  Country: HR (occurrence: HR)
  Receive Date: 20121023
  Receipt Date: 20121023
  Transmission Date: 20130627
  Serious: Yes (Life-Threatening)
  Sender: FDA-Public Use
  Company Number: HR-ELI_LILLY_AND_COMPANY-HR201210004404

PATIENT
  Age: 64 Year
  Sex: Female

DRUGS (5)
  1. ZYPREXA [Suspect]
     Dosage: 20 mg, qd
  2. LEPONEX [Concomitant]
     Indication: PSYCHOTIC DISORDER
     Dosage: 25 mg, UNK
     Route: 048
     Dates: start: 2010
  3. PRAZINE [Concomitant]
     Indication: PSYCHOTIC DISORDER
     Dosage: 50 mg, qd
     Route: 048
  4. SANVAL [Concomitant]
     Dosage: 60 mg, qd
     Route: 048
  5. GLUFORMIN [Concomitant]
     Dosage: 850 mg, qd

REACTIONS (5)
  - Serotonin syndrome [Not Recovered/Not Resolved]
  - Mental status changes [Not Recovered/Not Resolved]
  - Neuromyopathy [Not Recovered/Not Resolved]
  - Agitation [Not Recovered/Not Resolved]
  - Drug interaction [Not Recovered/Not Resolved]
